FAERS Safety Report 9435319 (Version 3)
Quarter: 2014Q1

REPORT INFORMATION
  Report Type: Spontaneous
  Country: JP (occurrence: None)
  Receive Date: 20130730
  Receipt Date: 20140312
  Transmission Date: 20141002
  Serious: Yes (Hospitalization)
  Sender: FDA-Public Use
  Company Number: AE-SPE-2013-023

PATIENT
  Age: 41 Year
  Sex: Male
  Weight: 10 kg

DRUGS (8)
  1. MEIACT MS [Suspect]
     Indication: OTITIS MEDIA
     Route: 048
     Dates: start: 20130416, end: 20130422
  2. ORAPENEM [Suspect]
     Indication: OTITIS MEDIA
     Route: 048
     Dates: start: 20130423, end: 20130425
  3. CEFDINIR [Concomitant]
     Route: 048
     Dates: start: 20130427, end: 20130503
  4. CLARITH (CLARITHROMYCIN) [Concomitant]
  5. L-CARBOCISTEINE [Concomitant]
  6. AMBROXOL HYDROCHLORIDE [Concomitant]
  7. TULOBUTEROL HYDROCHLORIDE [Concomitant]
  8. PRANLUKAST HYDRATE [Concomitant]

REACTIONS (3)
  - Hypoglycaemia [None]
  - No therapeutic response [None]
  - Carnitine decreased [None]
